FAERS Safety Report 18153219 (Version 1)
Quarter: 2020Q3

REPORT INFORMATION
  Report Type: Spontaneous
  Country: DE (occurrence: DE)
  Receive Date: 20200815
  Receipt Date: 20200815
  Transmission Date: 20201103
  Serious: Yes (Hospitalization, Other)
  Sender: FDA-Public Use
  Company Number: DE-SA-2020SA208903

PATIENT

DRUGS (9)
  1. ONDANSETRON [Concomitant]
     Active Substance: ONDANSETRON
     Dosage: 8 MG, RQUIREMENT
  2. FLUOROURACIL. [Suspect]
     Active Substance: FLUOROURACIL
     Dosage: 5200 G LAST TIME ON 23/06/2020
  3. MCP [Concomitant]
     Active Substance: METOCLOPRAMIDE HYDROCHLORIDE
     Dosage: 10 MG REQUIREMENT
  4. PANTOPRAZOL [Concomitant]
     Active Substance: PANTOPRAZOLE SODIUM
     Dosage: 40 MG, QD
  5. LEVOTHYROXINE SODIUM. [Concomitant]
     Active Substance: LEVOTHYROXINE SODIUM
     Dosage: 100 UG, QD
  6. FOLINIC ACID [Concomitant]
     Active Substance: LEUCOVORIN
     Dosage: 30 MG LAST TIME ON 23/06/2020
  7. OXALIPLATIN. [Suspect]
     Active Substance: OXALIPLATIN
     Dosage: 150 MG LAST TIME ON 23/06/2020
  8. METOPROLOL. [Concomitant]
     Active Substance: METOPROLOL
     Dosage: 47.5 MG, BID
  9. METAMIZOLE SALT NOT SPECIFIED [Suspect]
     Active Substance: METAMIZOLE
     Dosage: 30?30?30?30, TROPFEN

REACTIONS (8)
  - General physical health deterioration [Unknown]
  - Dysphagia [Unknown]
  - Blood creatinine increased [Unknown]
  - Decreased appetite [Unknown]
  - Vomiting [Unknown]
  - Acute kidney injury [Unknown]
  - Pancreatitis [Unknown]
  - Malaise [Unknown]
